FAERS Safety Report 9167492 (Version 1)
Quarter: 2013Q1

REPORT INFORMATION
  Report Type: Spontaneous
  Country: DK (occurrence: None)
  Receive Date: 20130304
  Receipt Date: 20130304
  Transmission Date: 20140127
  Serious: Yes (Other)
  Sender: FDA-Public Use
  Company Number: 2013MA001340

PATIENT
  Age: 18 Year
  Sex: Male

DRUGS (9)
  1. FLUOXETINE [Suspect]
     Indication: ANXIETY
     Route: 048
     Dates: start: 20130123, end: 20130201
  2. CLOBAZAM [Concomitant]
  3. CIRCADIN [Concomitant]
  4. VENTOLIN [Concomitant]
  5. PIZOTIFEN [Concomitant]
  6. LORATADINE [Concomitant]
  7. SODIUM VALPROATE [Concomitant]
  8. DESMOPRESSIN [Concomitant]
  9. MIDAZOLAM [Concomitant]

REACTIONS (4)
  - Epistaxis [None]
  - Agitation [None]
  - Priapism [None]
  - Aggression [None]
